FAERS Safety Report 16985868 (Version 5)
Quarter: 2020Q3

REPORT INFORMATION
  Report Type: Report from Study
  Country: DE (occurrence: DE)
  Receive Date: 20191101
  Receipt Date: 20200826
  Transmission Date: 20201102
  Serious: Yes (Hospitalization, Other)
  Sender: FDA-Public Use
  Company Number: DE-BRISTOL-MYERS SQUIBB COMPANY-BMS-2019-067358

PATIENT
  Age: 69 Year
  Sex: Female

DRUGS (6)
  1. LOPERAMIDE HYDROCHLORIDE. [Concomitant]
     Active Substance: LOPERAMIDE HYDROCHLORIDE
     Indication: PRODUCT USED FOR UNKNOWN INDICATION
     Route: 065
  2. IPILIMUMAB [Suspect]
     Active Substance: IPILIMUMAB
     Indication: MALIGNANT MELANOMA
     Dosage: 250 MILLIGRAM, Q3WK
     Route: 042
     Dates: start: 20190516, end: 20190516
  3. NIVOLUMAB [Suspect]
     Active Substance: NIVOLUMAB
     Indication: MALIGNANT MELANOMA
     Dosage: 90 MILLIGRAM, Q2WK
     Route: 042
     Dates: start: 20190516, end: 20190516
  4. NIVOLUMAB [Suspect]
     Active Substance: NIVOLUMAB
     Dosage: 70 MILLIGRAM, Q3WK
     Route: 042
  5. PHYTOMENADION [Concomitant]
     Indication: PRODUCT USED FOR UNKNOWN INDICATION
     Dosage: UNK
     Route: 048
     Dates: start: 20190702, end: 20190702
  6. IPILIMUMAB [Suspect]
     Active Substance: IPILIMUMAB
     Dosage: 200 MILLIGRAM, Q3WK
     Route: 065

REACTIONS (6)
  - Immune-mediated enterocolitis [Recovering/Resolving]
  - Intentional product use issue [Unknown]
  - Toxicity to various agents [Unknown]
  - Diarrhoea [Recovered/Resolved]
  - Dry skin [Not Recovered/Not Resolved]
  - Off label use [Unknown]

NARRATIVE: CASE EVENT DATE: 20190517
